FAERS Safety Report 9919289 (Version 1)
Quarter: 2014Q1

REPORT INFORMATION
  Report Type: Report from Study
  Country: CA (occurrence: CA)
  Receive Date: 20140224
  Receipt Date: 20140224
  Transmission Date: 20141002
  Serious: Yes (Other)
  Sender: FDA-Public Use
  Company Number: CA-JNJFOC-20140211563

PATIENT
  Age: 53 Year
  Sex: Male
  Weight: 114 kg

DRUGS (10)
  1. STELARA [Suspect]
     Indication: PSORIATIC ARTHROPATHY
     Route: 058
     Dates: start: 20131017
  2. STELARA [Suspect]
     Indication: PSORIASIS
     Route: 058
     Dates: start: 20131017
  3. CRESTOR [Concomitant]
     Route: 048
  4. VASOTEC [Concomitant]
     Route: 048
  5. METOPROLOL [Concomitant]
     Route: 048
  6. PAXIL [Concomitant]
     Route: 048
  7. ASA [Concomitant]
     Route: 048
  8. LOSEC [Concomitant]
     Route: 048
  9. METFORMIN [Concomitant]
     Route: 048
  10. DIAMICRON [Concomitant]
     Route: 048

REACTIONS (1)
  - Graft infection [Unknown]
